FAERS Safety Report 4316677-5 (Version None)
Quarter: 2004Q1

REPORT INFORMATION
  Report Type: 
  Country: None (occurrence: None)
  Receive Date: 20040311
  Receipt Date: 20040303
  Transmission Date: 20041129
  Serious: Yes (Hospitalization)
  Sender: FDA-Public Use
  Company Number: 2004197055JP

PATIENT
  Age: 69 Year
  Sex: Male
  Weight: 80 kg

DRUGS (8)
  1. CABERGOLINE [Suspect]
     Indication: PARKINSON'S DISEASE
     Dosage: SEE IMAGE
     Route: 048
     Dates: start: 20000106, end: 20040128
  2. CABERGOLINE [Suspect]
     Indication: PARKINSON'S DISEASE
     Dosage: SEE IMAGE
     Route: 048
     Dates: start: 20040129, end: 20040130
  3. CABERGOLINE [Suspect]
     Indication: PARKINSON'S DISEASE
     Dosage: SEE IMAGE
     Route: 048
     Dates: start: 20040131, end: 20040201
  4. LUVOX [Suspect]
     Dosage: 50 MG/DAY, ORAL
     Route: 048
     Dates: start: 20010827, end: 20040128
  5. AKINETON [Concomitant]
  6. MENESIT [Concomitant]
  7. SERMION [Concomitant]
  8. BLOPRESS (CANDESARTAN CILEXETIL) [Concomitant]

REACTIONS (5)
  - CARDIAC FAILURE [None]
  - OEDEMA [None]
  - OEDEMA PERIPHERAL [None]
  - RHABDOMYOLYSIS [None]
  - URINE OUTPUT DECREASED [None]
